FAERS Safety Report 17115361 (Version 2)
Quarter: 2019Q4

REPORT INFORMATION
  Report Type: Spontaneous
  Country: CN (occurrence: CN)
  Receive Date: 20191205
  Receipt Date: 20191211
  Transmission Date: 20200122
  Serious: Yes (Death, Hospitalization, Disabling, Other)
  Sender: FDA-Public Use
  Company Number: CN-PFIZER INC-2019520594

PATIENT
  Age: 16 Month
  Sex: Female
  Weight: 9 kg

DRUGS (2)
  1. METHOTREXATE. [Suspect]
     Active Substance: METHOTREXATE
     Indication: ACUTE LYMPHOCYTIC LEUKAEMIA
     Dosage: SINGLE DOSE OF 2.3 G X 2 TIMES, 1.6 G X 2 TIMES, ONCE EVERY 2 WEEKS
     Route: 041
     Dates: start: 2019
  2. METHOTREXATE. [Suspect]
     Active Substance: METHOTREXATE
     Dosage: UNK
     Route: 041
     Dates: start: 20191125

REACTIONS (9)
  - Blindness [Fatal]
  - Toxic encephalopathy [Unknown]
  - Neurotoxicity [Unknown]
  - Urine output decreased [Unknown]
  - Prescribed overdose [Fatal]
  - Constipation [Unknown]
  - Inadequate diet [Unknown]
  - Seizure [Fatal]
  - Somnolence [Unknown]

NARRATIVE: CASE EVENT DATE: 2019
